FAERS Safety Report 7553747-2 (Version None)
Quarter: 2011Q2

REPORT INFORMATION
  Report Type: 
  Country: None (occurrence: None)
  Receive Date: 20110609
  Receipt Date: 20110519
  Transmission Date: 20111010
  Serious: Yes (Hospitalization)
  Sender: FDA-Public Use
  Company Number: JPI-P-015268

PATIENT
  Age: 32 Year
  Sex: Male

DRUGS (1)
  1. XYREM [Suspect]
     Indication: CATAPLEXY
     Dosage: 7.5 GM (3.75 GM,2 IN 1 D),ORAL
     Route: 048
     Dates: start: 20110401

REACTIONS (6)
  - DIPLOPIA [None]
  - HYPERHIDROSIS [None]
  - PRODUCT TASTE ABNORMAL [None]
  - MALAISE [None]
  - NERVOUSNESS [None]
  - DIZZINESS [None]
